FAERS Safety Report 9327868 (Version 1)
Quarter: 2013Q2

REPORT INFORMATION
  Report Type: Spontaneous
  Country: ES (occurrence: ES)
  Receive Date: 20130604
  Receipt Date: 20130604
  Transmission Date: 20140414
  Serious: Yes (Other)
  Sender: FDA-Public Use
  Company Number: ES-JNJFOC-20130515589

PATIENT
  Sex: 0

DRUGS (20)
  1. DOXORUBICIN [Suspect]
     Indication: BURKITT^S LEUKAEMIA
     Dosage: OVER 15 MINS ON DAYS 32-33
     Route: 042
  2. DOXORUBICIN [Suspect]
     Indication: BURKITT^S LYMPHOMA
     Dosage: OVER 15 MINS ON DAYS 32-33
     Route: 042
  3. RITUXIMAB [Suspect]
     Indication: BURKITT^S LEUKAEMIA
     Dosage: 4 HOUR ON DAYS 7; CYCLE A AND CYCLE B ON DAY 28;
     Route: 042
  4. RITUXIMAB [Suspect]
     Indication: BURKITT^S LYMPHOMA
     Dosage: 4 HOUR ON DAYS 7; CYCLE A AND CYCLE B ON DAY 28;
     Route: 042
  5. VINCRISTINE [Suspect]
     Indication: BURKITT^S LEUKAEMIA
     Dosage: ABSOLUTE ON DAY 8; CYCLE A AND CYCLE B ON DAY 29
     Route: 040
  6. VINCRISTINE [Suspect]
     Indication: BURKITT^S LYMPHOMA
     Dosage: ABSOLUTE ON DAY 8; CYCLE A AND CYCLE B ON DAY 29
     Route: 040
  7. METHOTREXATE [Suspect]
     Indication: BURKITT^S LEUKAEMIA
     Dosage: FOR 24 HOURS ON DAY 8; CYCLE A AND CYCLE B ON DAY 29;
     Route: 042
  8. METHOTREXATE [Suspect]
     Indication: BURKITT^S LYMPHOMA
     Dosage: FOR 24 HOURS ON DAY 8; CYCLE A AND CYCLE B ON DAY 29;
     Route: 042
  9. CYCLOPHOSPHAMIDE [Suspect]
     Indication: BURKITT^S LEUKAEMIA
     Dosage: 1 HOUR ON DAYS 1-5 (PREPHASE) AND CYCLE B ON DAYS 29-33
     Route: 042
  10. CYCLOPHOSPHAMIDE [Suspect]
     Indication: BURKITT^S LYMPHOMA
     Dosage: 1 HOUR ON DAYS 1-5 (PREPHASE) AND CYCLE B ON DAYS 29-33
     Route: 042
  11. DEXAMETHASONE [Suspect]
     Indication: BURKITT^S LEUKAEMIA
     Dosage: ON DAYS 8-12 IN CYCLE A AND 29-33 IN CYCLE B
     Route: 040
  12. DEXAMETHASONE [Suspect]
     Indication: BURKITT^S LYMPHOMA
     Dosage: ON DAYS 8-12 IN CYCLE A AND 29-33 IN CYCLE B
     Route: 040
  13. PREDNISONE [Suspect]
     Indication: BURKITT^S LEUKAEMIA
     Dosage: DAYS 1-5
     Route: 040
  14. PREDNISONE [Suspect]
     Indication: BURKITT^S LYMPHOMA
     Dosage: DAYS 1-5
     Route: 040
  15. IPHOSPHAMIDE [Suspect]
     Indication: BURKITT^S LEUKAEMIA
     Dosage: FOR 1 HOUR ON DAY 8-12; CYCLE A
     Route: 042
  16. IPHOSPHAMIDE [Suspect]
     Indication: BURKITT^S LYMPHOMA
     Dosage: FOR 1 HOUR ON DAY 8-12; CYCLE A
     Route: 042
  17. TENIPOSIDE [Suspect]
     Indication: BURKITT^S LEUKAEMIA
     Dosage: FOR 1 HOUR ON DAY 11-12; CYCLE A
     Route: 042
  18. TENIPOSIDE [Suspect]
     Indication: BURKITT^S LYMPHOMA
     Dosage: FOR 1 HOUR ON DAY 11-12; CYCLE A
     Route: 042
  19. CYTARABINE [Suspect]
     Indication: BURKITT^S LEUKAEMIA
     Dosage: FOR 1 HOUR PER 12 HOUR ON DAY 11-12; CYCLE A
     Route: 042
  20. CYTARABINE [Suspect]
     Indication: BURKITT^S LYMPHOMA
     Dosage: FOR 1 HOUR PER 12 HOUR ON DAY 11-12; CYCLE A
     Route: 042

REACTIONS (1)
  - Hepatotoxicity [Unknown]
